FAERS Safety Report 16057759 (Version 1)
Quarter: 2019Q1

REPORT INFORMATION
  Report Type: Spontaneous
  Country: US (occurrence: US)
  Receive Date: 20190311
  Receipt Date: 20190311
  Transmission Date: 20190418
  Serious: No
  Sender: FDA-Public Use
  Company Number: US-CELGENEUS-USA-20190301265

PATIENT
  Sex: Female
  Weight: 50 kg

DRUGS (2)
  1. DEXAMETHASONE. [Concomitant]
     Active Substance: DEXAMETHASONE
     Indication: PRODUCT USED FOR UNKNOWN INDICATION
     Route: 065
  2. LENALIDOMIDE [Suspect]
     Active Substance: LENALIDOMIDE
     Indication: PLASMA CELL MYELOMA
     Dosage: 10 MILLIGRAM
     Route: 048
     Dates: start: 20190205

REACTIONS (7)
  - Feeling jittery [Not Recovered/Not Resolved]
  - Tremor [Not Recovered/Not Resolved]
  - Confusional state [Not Recovered/Not Resolved]
  - Fatigue [Not Recovered/Not Resolved]
  - Visual impairment [Not Recovered/Not Resolved]
  - Somnolence [Not Recovered/Not Resolved]
  - Chills [Not Recovered/Not Resolved]

NARRATIVE: CASE EVENT DATE: 2019
